FAERS Safety Report 9511855 (Version 2)
Quarter: 2014Q1

REPORT INFORMATION
  Report Type: Spontaneous
  Country: US (occurrence: US)
  Receive Date: 20130910
  Receipt Date: 20140102
  Transmission Date: 20141002
  Serious: Yes (Hospitalization)
  Sender: FDA-Public Use
  Company Number: US-BAYER-2013-107078

PATIENT
  Age: 26 Year
  Sex: Female
  Weight: 85 kg

DRUGS (8)
  1. MIRENA [Suspect]
     Indication: CONTRACEPTION
     Dosage: 20 MCG/24HR, CONT
     Route: 015
     Dates: start: 20090201, end: 20120910
  2. ATIVAN [Concomitant]
     Indication: ATTENTION DEFICIT/HYPERACTIVITY DISORDER
     Dosage: 2 MG, 1 TABLET QD
     Dates: start: 20110101
  3. CLONAZEPAM [Concomitant]
     Indication: ANXIETY
     Dosage: UNK
     Route: 048
     Dates: start: 20110101
  4. LITHIUM [Concomitant]
     Indication: MOOD SWINGS
     Dosage: 600 MG, 1 CAPSULE BID
     Dates: start: 20110101
  5. OLANZAPINE [Concomitant]
     Indication: PARANOIA
     Dosage: 10 MG, 1 TABLET QD
     Route: 048
     Dates: start: 20110101
  6. AMBIEN [Concomitant]
     Indication: INSOMNIA
     Dosage: UNK
     Dates: start: 20110101
  7. PROZAC [Concomitant]
     Dosage: 40 MG, 1 CAPSULE QD
  8. ADDERALL [Concomitant]
     Dosage: UNK, 1 TAB EVERY DAY
     Route: 048

REACTIONS (10)
  - Embedded device [None]
  - Procedural pain [None]
  - Scar [None]
  - Injury [None]
  - Depression [None]
  - Anxiety [None]
  - Panic disorder [None]
  - Device issue [None]
  - Menorrhagia [None]
  - Device misuse [None]
